FAERS Safety Report 11083508 (Version 1)
Quarter: 2015Q2

REPORT INFORMATION
  Report Type: Spontaneous
  Country: US (occurrence: US)
  Receive Date: 20150501
  Receipt Date: 20150501
  Transmission Date: 20150821
  Serious: Yes (Hospitalization)
  Sender: FDA-Public Use
  Company Number: PHHY2015US048445

PATIENT
  Age: 36 Year
  Sex: Male

DRUGS (18)
  1. VORICONAZOLE. [Concomitant]
     Active Substance: VORICONAZOLE
     Indication: THERMAL BURN
     Dosage: 200 MG, Q12H
     Route: 065
  2. CLONAZEPAM. [Concomitant]
     Active Substance: CLONAZEPAM
     Indication: ANXIETY
  3. FENTANYL. [Suspect]
     Active Substance: FENTANYL
     Indication: SEDATION
  4. LORAZEPAM. [Concomitant]
     Active Substance: LORAZEPAM
     Dosage: 6 MG, Q2H
     Route: 042
  5. ATOMOXETINE [Concomitant]
     Active Substance: ATOMOXETINE
     Indication: SUBSTANCE ABUSE
  6. LORAZEPAM. [Concomitant]
     Active Substance: LORAZEPAM
     Indication: SEDATION
     Dosage: 10 MG, Q4H
     Route: 065
  7. CLONAZEPAM. [Concomitant]
     Active Substance: CLONAZEPAM
     Indication: SUBSTANCE ABUSE
  8. METHADONE [Suspect]
     Active Substance: METHADONE HYDROCHLORIDE
     Indication: ANALGESIC THERAPY
     Dosage: 30 MG, Q6H
     Route: 065
  9. LORAZEPAM. [Concomitant]
     Active Substance: LORAZEPAM
     Indication: PAIN
     Dosage: 6 MG, Q4H
     Route: 042
  10. VANCOMYCIN [Concomitant]
     Active Substance: VANCOMYCIN
     Indication: THERMAL BURN
     Dosage: 15 MCG/ML, UNK
     Route: 065
  11. CEFEPIME [Concomitant]
     Active Substance: CEFEPIME\CEFEPIME HYDROCHLORIDE
     Indication: THERMAL BURN
     Dosage: 2 G, Q12H
     Route: 041
  12. ATOMOXETINE [Concomitant]
     Active Substance: ATOMOXETINE
     Indication: BIPOLAR DISORDER
     Dosage: 80 MG, QD
     Route: 065
  13. OXYCODONE [Concomitant]
     Active Substance: OXYCODONE
     Indication: ANALGESIC THERAPY
     Dosage: 20 MG, Q4H
     Route: 065
  14. FENTANYL. [Suspect]
     Active Substance: FENTANYL
     Indication: PAIN
     Route: 041
  15. CLONAZEPAM. [Concomitant]
     Active Substance: CLONAZEPAM
     Indication: BIPOLAR DISORDER
     Dosage: 3 MG, TID
     Route: 065
  16. ATOMOXETINE [Concomitant]
     Active Substance: ATOMOXETINE
     Indication: ANXIETY
  17. VECURONIUM [Concomitant]
     Active Substance: VECURONIUM BROMIDE
     Indication: HYPOTONIA
     Route: 065
  18. DIAZEPAM. [Concomitant]
     Active Substance: DIAZEPAM
     Indication: SEDATION
     Dosage: 60 MG, BID
     Route: 065

REACTIONS (6)
  - Hyperthermia [Recovered/Resolved]
  - Myoclonus [Recovered/Resolved]
  - Delirium [Recovered/Resolved]
  - Hyperreflexia [Recovered/Resolved]
  - Serotonin syndrome [Recovered/Resolved]
  - Agitation [Recovered/Resolved]
